FAERS Safety Report 15219842 (Version 1)
Quarter: 2018Q4

REPORT INFORMATION
  Report Type: Spontaneous
  Country: DE (occurrence: DE)
  Receive Date: 20180731
  Receipt Date: 20180731
  Transmission Date: 20190204
  Serious: Yes (Hospitalization, Other)
  Sender: FDA-Public Use
  Company Number: DE-DRREDDYS-GER/GER/18/0102449

PATIENT
  Age: 34 Year
  Sex: Female

DRUGS (4)
  1. CETROTID [Suspect]
     Active Substance: CETRORELIX ACETATE
     Indication: MANAGEMENT OF REPRODUCTION
  2. LETROZOLE. [Suspect]
     Active Substance: LETROZOLE
     Indication: PRODUCT USED FOR UNKNOWN INDICATION
  3. OVALEAP [Suspect]
     Active Substance: FOLLITROPIN
     Indication: MANAGEMENT OF REPRODUCTION
     Route: 065
  4. TRIPTOFEM [Suspect]
     Active Substance: TRIPTORELIN ACETATE
     Indication: MANAGEMENT OF REPRODUCTION
     Dosage: 2 AMPULLEN
     Route: 065

REACTIONS (3)
  - Ascites [Recovered/Resolved]
  - Haematocrit increased [Recovered/Resolved]
  - Ovarian hyperstimulation syndrome [Recovered/Resolved]

NARRATIVE: CASE EVENT DATE: 20180615
